FAERS Safety Report 19596674 (Version 2)
Quarter: 2021Q3

REPORT INFORMATION
  Report Type: Spontaneous
  Country: US (occurrence: US)
  Receive Date: 20210722
  Receipt Date: 20210812
  Transmission Date: 20211014
  Serious: Yes (Hospitalization, Other)
  Sender: FDA-Public Use
  Company Number: US-PFIZER INC-202100912613

PATIENT
  Age: 55 Year
  Sex: Female
  Weight: 155 kg

DRUGS (2)
  1. TRETINOIN. [Concomitant]
     Active Substance: TRETINOIN
     Dosage: 10 MG, 2X/DAY
  2. LYRICA [Suspect]
     Active Substance: PREGABALIN
     Indication: PROPHYLACTIC CHEMOTHERAPY
     Dosage: UNK (MON?FRI CHEMO)
     Dates: start: 20210518

REACTIONS (2)
  - Leukaemia [Not Recovered/Not Resolved]
  - Off label use [Unknown]

NARRATIVE: CASE EVENT DATE: 202105
